FAERS Safety Report 8922571 (Version 4)
Quarter: 2022Q4

REPORT INFORMATION
  Report Type: Spontaneous
  Country: US (occurrence: None)
  Receive Date: 20121123
  Receipt Date: 20221005
  Transmission Date: 20230113
  Serious: Yes (Hospitalization, Other)
  Sender: FDA-Public Use
  Company Number: US-ROCHE-1158780

PATIENT
  Age: 51 Year
  Sex: Female

DRUGS (5)
  1. BONIVA [Suspect]
     Active Substance: IBANDRONATE SODIUM
     Indication: Osteoporosis
     Route: 065
     Dates: start: 2007, end: 2008
  2. BONIVA [Suspect]
     Active Substance: IBANDRONATE SODIUM
     Indication: Bone loss
     Route: 065
     Dates: start: 2009, end: 2009
  3. FOSAMAX [Suspect]
     Active Substance: ALENDRONATE SODIUM
     Indication: Osteoporosis
     Route: 048
     Dates: start: 1998, end: 2005
  4. FOSAMAX [Suspect]
     Active Substance: ALENDRONATE SODIUM
     Indication: Bone loss
  5. RECLAST [Suspect]
     Active Substance: ZOLEDRONIC ACID
     Indication: Bone loss
     Route: 042
     Dates: start: 2009

REACTIONS (24)
  - Hip fracture [Unknown]
  - Muscle spasms [Unknown]
  - Fracture nonunion [Unknown]
  - Pain in extremity [Unknown]
  - Low turnover osteopathy [Unknown]
  - Femur fracture [Unknown]
  - Emotional distress [Unknown]
  - Depression [Not Recovered/Not Resolved]
  - Femoral neck fracture [Unknown]
  - Pelvic fracture [Not Recovered/Not Resolved]
  - Radius fracture [Unknown]
  - Asthenia [Unknown]
  - Pelvic pain [Unknown]
  - Joint noise [Unknown]
  - Pain in extremity [Unknown]
  - Micturition urgency [Unknown]
  - Arthralgia [Unknown]
  - Back pain [Unknown]
  - Arthritis [Unknown]
  - Skin discolouration [Unknown]
  - Breakthrough pain [Unknown]
  - Frustration tolerance decreased [Unknown]
  - Nervousness [Unknown]
  - Upper respiratory tract infection [Unknown]

NARRATIVE: CASE EVENT DATE: 20030301
